FAERS Safety Report 5015253-9 (Version None)
Quarter: 2006Q2

REPORT INFORMATION
  Report Type: 
  Country: None (occurrence: None)
  Receive Date: 20060425
  Receipt Date: 20060313
  Transmission Date: 20061013
  Serious: No
  Sender: FDA-Public Use
  Company Number: 2006-BP-02867BP

PATIENT

DRUGS (1)
  1. APTIVUS/RITONAVIR CAPSULES [Suspect]
     Dosage: (SEE TEXT,250 MG TIPRANAVIR/100 MG RITONAVIR),PO
     Route: 048

REACTIONS (2)
  - HEPATITIS B [None]
  - HEPATOTOXICITY [None]
